FAERS Safety Report 9383730 (Version 3)
Quarter: 2013Q3

REPORT INFORMATION
  Report Type: Spontaneous
  Country: US (occurrence: US)
  Receive Date: 20130704
  Receipt Date: 20130821
  Transmission Date: 20140515
  Serious: Yes (Hospitalization)
  Sender: FDA-Public Use
  Company Number: US-009507513-1307USA000885

PATIENT
  Age: 60 Year
  Sex: Female
  Weight: 89.34 kg

DRUGS (1)
  1. DECADRON [Suspect]
     Indication: PLASMA CELL MYELOMA
     Dosage: 4 MG, QW
     Route: 048
     Dates: start: 20120501

REACTIONS (1)
  - Abscess limb [Recovered/Resolved]
